FAERS Safety Report 20155906 (Version 2)
Quarter: 2021Q4

REPORT INFORMATION
  Report Type: Report from Study
  Country: BD (occurrence: BD)
  Receive Date: 20211207
  Receipt Date: 20211210
  Transmission Date: 20220303
  Serious: Yes (Death, Hospitalization)
  Sender: FDA-Public Use
  Company Number: BD-NOVARTISPH-NVSC2021BD279234

PATIENT
  Age: 47 Year
  Sex: Male
  Weight: 43 kg

DRUGS (1)
  1. CYCLOSPORINE [Suspect]
     Active Substance: CYCLOSPORINE
     Indication: Anaemia
     Dosage: 50 MG, QD
     Route: 048
     Dates: start: 202108, end: 202110

REACTIONS (5)
  - COVID-19 [Fatal]
  - Pyrexia [Fatal]
  - Cough [Fatal]
  - General physical health deterioration [Fatal]
  - Product use in unapproved indication [Unknown]

NARRATIVE: CASE EVENT DATE: 20210101
